FAERS Safety Report 22234903 (Version 3)
Quarter: 2023Q2

REPORT INFORMATION
  Report Type: Spontaneous
  Country: EE (occurrence: EE)
  Receive Date: 20230420
  Receipt Date: 20230605
  Transmission Date: 20230722
  Serious: Yes (Hospitalization, Other)
  Sender: FDA-Public Use
  Company Number: EE-009507513-2304EST006246

PATIENT
  Age: 33 Year
  Sex: Female

DRUGS (6)
  1. KEYTRUDA [Suspect]
     Active Substance: PEMBROLIZUMAB
     Indication: Triple negative breast cancer
     Dosage: 200 MILLIGRAM, EVERY 21 DAYS (Q3W)
     Dates: start: 20221230
  2. EPIRUBICIN [Suspect]
     Active Substance: EPIRUBICIN
     Indication: Triple negative breast cancer
     Dosage: UNK
  3. EPIRUBICIN [Suspect]
     Active Substance: EPIRUBICIN
     Dosage: STRENGTH: 90 MILLIGRAM (MG)/SQUARE METER (M2), 5TH CYCLE
     Dates: start: 20230330
  4. CYCLOPHOSPHAMIDE [Suspect]
     Active Substance: CYCLOPHOSPHAMIDE
     Indication: Triple negative breast cancer
     Dosage: UNK
  5. CYCLOPHOSPHAMIDE [Suspect]
     Active Substance: CYCLOPHOSPHAMIDE
     Dosage: STRENGTH: 600 MILLIGRAM (MG)/SQUARE METER (M2), 5TH CYCLE
     Dates: start: 20230330
  6. FILGRASTIM [Concomitant]
     Active Substance: FILGRASTIM
     Indication: Triple negative breast cancer
     Dosage: 300 MICROGRAM (MCG)X 3
     Dates: start: 20230330, end: 20230401

REACTIONS (2)
  - Febrile neutropenia [Unknown]
  - Hyperthyroidism [Unknown]

NARRATIVE: CASE EVENT DATE: 20230407
